FAERS Safety Report 10085780 (Version 1)
Quarter: 2014Q2

REPORT INFORMATION
  Report Type: Spontaneous
  Country: US (occurrence: None)
  Receive Date: 20140416
  Receipt Date: 20140416
  Transmission Date: 20141212
  Serious: Yes (Hospitalization)
  Sender: FDA-Public Use
  Company Number: 08-AUR-02008

PATIENT
  Age: 74 Year
  Sex: Female
  Weight: 75 kg

DRUGS (5)
  1. ATENOLOL [Suspect]
     Indication: HYPERTENSION
     Route: 048
     Dates: start: 20050527, end: 20071124
  2. TERBINAFINE [Suspect]
     Indication: FUNGAL INFECTION
     Route: 048
     Dates: start: 20071114, end: 20071124
  3. ALENDRONATE [Concomitant]
  4. AMOXICILLIN [Concomitant]
  5. BENDROFLUMETHIAZIDE [Concomitant]

REACTIONS (1)
  - Cerebrovascular accident [None]
